FAERS Safety Report 4795736-7 (Version None)
Quarter: 2005Q3

REPORT INFORMATION
  Report Type: 
  Country: None (occurrence: None)
  Receive Date: 20050916
  Receipt Date: 20050706
  Transmission Date: 20060218
  Serious: Yes (Other)
  Sender: FDA-Public Use
  Company Number: US-JNJFOC-20050701250

PATIENT
  Age: 36 Year
  Sex: Female

DRUGS (6)
  1. TOPAMAX [Suspect]
     Indication: MIGRAINE
     Dosage: 75 MG, 1 IN 1 DAY, ORAL; 50 MG, 1 IN 1 DAY, ORAL
     Route: 048
     Dates: start: 20050101
  2. TOPAMAX [Suspect]
     Indication: MIGRAINE
     Dosage: 75 MG, 1 IN 1 DAY, ORAL; 50 MG, 1 IN 1 DAY, ORAL
     Route: 048
     Dates: start: 20050101
  3. LITHIUM [Concomitant]
  4. PROZAC [Concomitant]
  5. BROMOCRIPTINE (BROMOCRIPTINE) TABLETS [Concomitant]
  6. WELLBUTRIN [Concomitant]

REACTIONS (1)
  - SUICIDAL IDEATION [None]
